FAERS Safety Report 4967503-2 (Version None)
Quarter: 2006Q2

REPORT INFORMATION
  Report Type: 
  Country: None (occurrence: None)
  Receive Date: 20060404
  Receipt Date: 20060320
  Transmission Date: 20061013
  Serious: Yes (Life-Threatening, Hospitalization)
  Sender: FDA-Public Use
  Company Number: GXKR2005GB01496

PATIENT
  Sex: Male

DRUGS (8)
  1. AMLODIPINE [Suspect]
     Indication: MEDICATION ERROR
     Dosage: 56 TABLETS OF 10 MG, ORAL
     Route: 048
  2. FLUOXETINE [Suspect]
     Indication: MEDICATION ERROR
     Dosage: 600 MG, ORAL
     Route: 048
  3. ASPIRIN [Suspect]
     Indication: MEDICATION ERROR
     Dosage: 7.5 G,
  4. CITALOPRAM HYDROBROMIDE [Suspect]
     Indication: MEDICATION ERROR
     Dosage: 280 MG, ORAL
     Route: 048
  5. FOLIC ACID [Suspect]
     Indication: MEDICATION ERROR
     Dosage: 30 TABLETS, ORAL
     Route: 048
  6. ACETAMINOPHEN [Suspect]
     Indication: MEDICATION ERROR
     Dosage: 16 G
  7. PERINDOPRIL (PERINDOPRIL) [Suspect]
     Indication: MEDICATION ERROR
     Dosage: 120 MG
  8. ALCOHOL (ETHANOL) [Suspect]

REACTIONS (13)
  - ALCOHOL USE [None]
  - BASE EXCESS INCREASED [None]
  - CARDIOTOXICITY [None]
  - CIRCULATORY COLLAPSE [None]
  - DEPRESSED LEVEL OF CONSCIOUSNESS [None]
  - GLASGOW COMA SCALE ABNORMAL [None]
  - HEART RATE DECREASED [None]
  - HYPOKALAEMIA [None]
  - HYPOTENSION [None]
  - METABOLIC ACIDOSIS [None]
  - MULTIPLE DRUG OVERDOSE INTENTIONAL [None]
  - RENAL FAILURE ACUTE [None]
  - URINARY RETENTION [None]
